FAERS Safety Report 6149408-7 (Version None)
Quarter: 2009Q2

REPORT INFORMATION
  Report Type: 
  Country: None (occurrence: None)
  Receive Date: 20090409
  Receipt Date: 20090330
  Transmission Date: 20091009
  Serious: Yes (Hospitalization)
  Sender: FDA-Public Use
  Company Number: US-BIOGENIDEC-2009BI007273

PATIENT
  Age: 53 Year
  Sex: Female

DRUGS (2)
  1. AVONEX [Suspect]
     Indication: MULTIPLE SCLEROSIS
     Route: 030
     Dates: start: 20030901, end: 20090224
  2. AVONEX [Suspect]
     Route: 030
     Dates: start: 20020416, end: 20030801

REACTIONS (10)
  - BLOOD GLUCOSE INCREASED [None]
  - BLOOD PRESSURE INCREASED [None]
  - BODY TEMPERATURE INCREASED [None]
  - HEPATIC ENZYME INCREASED [None]
  - LIVER INJURY [None]
  - POISONING [None]
  - RENAL DISORDER [None]
  - SHOCK [None]
  - SINUS CONGESTION [None]
  - URINARY TRACT INFECTION [None]
